FAERS Safety Report 7282718-9 (Version None)
Quarter: 2011Q1

REPORT INFORMATION
  Report Type: 
  Country: None (occurrence: None)
  Receive Date: 20110209
  Receipt Date: 20110131
  Transmission Date: 20110831
  Serious: Yes (Hospitalization)
  Sender: FDA-Public Use
  Company Number: GB-JNJFOC-JAUK33436

PATIENT
  Sex: Female

DRUGS (3)
  1. WARFARIN SODIUM [Interacting]
     Indication: MITRAL VALVE DISEASE
     Route: 065
  2. DAKTARIN [Suspect]
     Route: 048
     Dates: start: 19970302, end: 19970309
  3. DAKTARIN [Suspect]
     Indication: ORAL CANDIDIASIS
     Dosage: 30 G OVER 8 DAYS, 75 MG PER DAY
     Route: 048
     Dates: start: 19970302, end: 19970309

REACTIONS (4)
  - DRUG INTERACTION [None]
  - CONTUSION [None]
  - INTERNATIONAL NORMALISED RATIO INCREASED [None]
  - HAEMATURIA [None]
